FAERS Safety Report 24344326 (Version 1)
Quarter: 2024Q3

REPORT INFORMATION
  Report Type: Spontaneous
  Country: US (occurrence: None)
  Receive Date: 20240919
  Receipt Date: 20240919
  Transmission Date: 20241017
  Serious: No
  Sender: Public
  Company Number: None

PATIENT
  Age: 58 Year
  Sex: Male

DRUGS (2)
  1. TRAVOPROST [Suspect]
     Active Substance: TRAVOPROST
  2. TRAVOPROST [Concomitant]
     Active Substance: TRAVOPROST

REACTIONS (2)
  - Burning sensation [None]
  - Visual impairment [None]
